FAERS Safety Report 19698846 (Version 2)
Quarter: 2021Q3

REPORT INFORMATION
  Report Type: Spontaneous
  Country: US (occurrence: US)
  Receive Date: 20210813
  Receipt Date: 20210915
  Transmission Date: 20211014
  Serious: Yes (Other)
  Sender: FDA-Public Use
  Company Number: US-PFIZER INC-202100969631

PATIENT
  Age: 49 Year
  Sex: Female

DRUGS (2)
  1. TOZINAMERAN. [Suspect]
     Active Substance: TOZINAMERAN
     Indication: COVID-19 IMMUNISATION
     Dosage: DOSE 2, SINGLE
     Dates: start: 20210511, end: 20210511
  2. PANTOPRAZOLE [Suspect]
     Active Substance: PANTOPRAZOLE
     Indication: GASTROOESOPHAGEAL REFLUX DISEASE
     Dosage: UNK
     Dates: start: 202102, end: 20210512

REACTIONS (11)
  - Urticaria [Not Recovered/Not Resolved]
  - Skin discolouration [Unknown]
  - Skin disorder [Unknown]
  - Depression [Unknown]
  - Hypersensitivity [Unknown]
  - Pain [Not Recovered/Not Resolved]
  - Pruritus [Unknown]
  - Malaise [Unknown]
  - Palpitations [Unknown]
  - Sensitive skin [Unknown]
  - Stress [Unknown]

NARRATIVE: CASE EVENT DATE: 2021
